FAERS Safety Report 5067202-5 (Version None)
Quarter: 2006Q3

REPORT INFORMATION
  Report Type: 
  Country: None (occurrence: None)
  Receive Date: 20060727
  Receipt Date: 20060711
  Transmission Date: 20061208
  Serious: Yes (Life-Threatening, Hospitalization)
  Sender: FDA-Public Use
  Company Number: 2006RR-02982

PATIENT
  Age: 53 Year
  Sex: Male

DRUGS (5)
  1. ASPIRIN [Suspect]
     Indication: ISCHAEMIA
     Dosage: 75 MG, ORAL
     Route: 048
     Dates: start: 20051208, end: 20060104
  2. CETIRIZINE (CETIRIZINE) TABLET [Concomitant]
  3. GTN-S [Concomitant]
  4. RAMIPRIL [Concomitant]
  5. SIMVASTATIN TABLET 40 MG (SIMVASTATIN) TABLET [Concomitant]

REACTIONS (4)
  - BLOOD UREA INCREASED [None]
  - HAEMATEMESIS [None]
  - HAEMOGLOBIN DECREASED [None]
  - MELAENA [None]
